FAERS Safety Report 7459240-X (Version None)
Quarter: 2011Q2

REPORT INFORMATION
  Report Type: 
  Country: None (occurrence: None)
  Receive Date: 20110505
  Receipt Date: 20110421
  Transmission Date: 20111010
  Serious: Yes (Death, Other)
  Sender: FDA-Public Use
  Company Number: NL-RANBAXY-2011R1-43959

PATIENT
  Age: 17 Year
  Sex: Female

DRUGS (7)
  1. CLARITHROMYCIN [Suspect]
     Indication: PNEUMONIA
     Dosage: 500 MG/DAY
     Route: 048
  2. AMOXICILLIN AND CLAVULANATE POTASSIUM [Suspect]
     Indication: PNEUMONIA
     Dosage: 1650 MG/DAY
     Route: 042
  3. AMOXICILLIN AND CLAVULANATE POTASSIUM [Suspect]
     Indication: RESPIRATORY FAILURE
  4. PARACETAMOL [Suspect]
     Indication: PRODUCT USED FOR UNKNOWN INDICATION
     Dosage: 40 NMOL/ML/DAY
     Route: 054
  5. CLARITHROMYCIN [Suspect]
     Indication: RESPIRATORY FAILURE
  6. CEFUROXIME AXETIL [Suspect]
     Indication: PNEUMONIA
     Dosage: 500 MG/DAY
     Route: 065
  7. CEFUROXIME AXETIL [Suspect]
     Indication: RESPIRATORY FAILURE

REACTIONS (3)
  - SHOCK [None]
  - ACUTE HEPATIC FAILURE [None]
  - MULTI-ORGAN FAILURE [None]
